FAERS Safety Report 6026650-7 (Version None)
Quarter: 2008Q4

REPORT INFORMATION
  Report Type: 
  Country: None (occurrence: None)
  Receive Date: 20081231
  Receipt Date: 20081216
  Transmission Date: 20090506
  Serious: Yes (Hospitalization)
  Sender: FDA-Public Use
  Company Number: KV200801172

PATIENT
  Age: 82 Year
  Sex: Male
  Weight: 56.7 kg

DRUGS (5)
  1. ISOSORBIDE MONONITRATE [Suspect]
     Indication: CHEST PAIN
     Dosage: 60 MG, QD, ORAL
     Route: 048
     Dates: start: 19980101
  2. DILTIAZEM [Concomitant]
  3. ZOCOR [Concomitant]
  4. SYNTHROID [Concomitant]
  5. PRINIVIL [Concomitant]

REACTIONS (3)
  - BLOOD POTASSIUM ABNORMAL [None]
  - HYPOTENSION [None]
  - PRODUCT QUALITY ISSUE [None]
